FAERS Safety Report 17413456 (Version 1)
Quarter: 2020Q1

REPORT INFORMATION
  Report Type: Spontaneous
  Country: DE (occurrence: DE)
  Receive Date: 20200213
  Receipt Date: 20200213
  Transmission Date: 20200409
  Serious: Yes (Hospitalization, Other)
  Sender: FDA-Public Use
  Company Number: DE-ASTRAZENECA-2016SE39764

PATIENT
  Sex: Male

DRUGS (3)
  1. ASPIRIN. [Concomitant]
     Active Substance: ASPIRIN
  2. JANUMET [Concomitant]
     Active Substance: METFORMIN HYDROCHLORIDE\SITAGLIPTIN PHOSPHATE
     Dosage: 50
  3. FORXIGA [Suspect]
     Active Substance: DAPAGLIFLOZIN
     Indication: GLYCOSYLATED HAEMOGLOBIN INCREASED
     Route: 048
     Dates: end: 20160411

REACTIONS (1)
  - Ketoacidosis [Not Recovered/Not Resolved]

NARRATIVE: CASE EVENT DATE: 201604
